FAERS Safety Report 17143381 (Version 1)
Quarter: 2019Q4

REPORT INFORMATION
  Report Type: Spontaneous
  Country: US (occurrence: US)
  Receive Date: 20191211
  Receipt Date: 20191211
  Transmission Date: 20200122
  Serious: No
  Sender: FDA-Public Use
  Company Number: US-AMERICAN REGENT INC-2019002315

PATIENT
  Age: 85 Year
  Sex: Female

DRUGS (2)
  1. VENOFER [Suspect]
     Active Substance: IRON SUCROSE
     Indication: MALABSORPTION
  2. VENOFER [Suspect]
     Active Substance: IRON SUCROSE
     Indication: IRON DEFICIENCY ANAEMIA
     Dosage: 200 MILLILITER IN 100 ML OF NORMAL SALINE
     Dates: start: 20191023, end: 20191023

REACTIONS (2)
  - Administration site discolouration [Recovering/Resolving]
  - Extravasation [Recovered/Resolved]

NARRATIVE: CASE EVENT DATE: 20191023
